FAERS Safety Report 9512555 (Version 1)
Quarter: 2013Q1

REPORT INFORMATION
  Report Type: Spontaneous
  Country: US (occurrence: None)
  Receive Date: 20130305
  Receipt Date: 20130305
  Transmission Date: 20140127
  Serious: Yes (Hospitalization)
  Sender: FDA-Public Use
  Company Number: 163-21880-12051670

PATIENT
  Age: 57 Year
  Sex: Female

DRUGS (1)
  1. REVLIMID [Suspect]
     Indication: MYELODYSPLASTIC SYNDROME
     Dosage: AFTER DIALYSIS THREE TIMES A WEEK
     Route: 048
     Dates: start: 20120407

REACTIONS (3)
  - Swelling [None]
  - Adverse drug reaction [None]
  - Pruritus [None]
